FAERS Safety Report 10717864 (Version 2)
Quarter: 2015Q1

REPORT INFORMATION
  Report Type: Spontaneous
  Country: US (occurrence: US)
  Receive Date: 20150116
  Receipt Date: 20150317
  Transmission Date: 20150721
  Serious: No
  Sender: FDA-Public Use
  Company Number: US-009507513-1501USA000923

PATIENT
  Age: 19 Year
  Sex: Female
  Weight: 71.93 kg

DRUGS (1)
  1. NEXPLANON [Suspect]
     Active Substance: ETONOGESTREL
     Indication: CONTRACEPTION
     Dosage: 3 YEARS 1 ROD
     Route: 058
     Dates: start: 20141103

REACTIONS (6)
  - Menstruation irregular [Unknown]
  - Metrorrhagia [Not Recovered/Not Resolved]
  - Dysfunctional uterine bleeding [Unknown]
  - Muscle spasms [Unknown]
  - Menstruation irregular [Unknown]
  - Pain in jaw [Unknown]

NARRATIVE: CASE EVENT DATE: 201411
